FAERS Safety Report 8793879 (Version 2)
Quarter: 2014Q1

REPORT INFORMATION
  Report Type: Report from Study
  Country: IT (occurrence: IT)
  Receive Date: 20120917
  Receipt Date: 20140326
  Transmission Date: 20141002
  Serious: Yes (Hospitalization)
  Sender: FDA-Public Use
  Company Number: PHHO2012IT013360

PATIENT
  Sex: 0

DRUGS (3)
  1. AMN107 [Suspect]
     Indication: CHRONIC MYELOID LEUKAEMIA
     Dosage: 400 MG, BID
     Route: 048
     Dates: start: 20080108, end: 20120822
  2. PANTORC [Concomitant]
     Indication: PROPHYLAXIS
     Dosage: 40 MG, QID
     Route: 048
     Dates: start: 20091013, end: 20120812
  3. PANTORC [Concomitant]
     Dosage: 20 MG, QID
     Route: 048
     Dates: start: 20120813, end: 20120827

REACTIONS (1)
  - Coronary artery disease [Recovered/Resolved with Sequelae]
